FAERS Safety Report 15223157 (Version 1)
Quarter: 2018Q3

REPORT INFORMATION
  Report Type: Spontaneous
  Country: US (occurrence: US)
  Receive Date: 20180731
  Receipt Date: 20180731
  Transmission Date: 20181010
  Serious: Yes (Hospitalization, Disabling, Other)
  Sender: FDA-Public Use
  Company Number: US-ENDO PHARMACEUTICALS INC-2018-039529

PATIENT
  Age: 79 Year
  Sex: Male
  Weight: 81.63 kg

DRUGS (9)
  1. TESTOPEL [Suspect]
     Active Substance: TESTOSTERONE
     Indication: BLOOD TESTOSTERONE DECREASED
  2. TESTIM [Suspect]
     Active Substance: TESTOSTERONE
     Indication: ANDROGEN REPLACEMENT THERAPY
     Dosage: UNK UNKNOWN, UNKNOWN
     Route: 065
     Dates: start: 2012
  3. VALSARTAN. [Concomitant]
     Active Substance: VALSARTAN
     Indication: HYPERTENSION
     Dosage: UNK UNKNOWN, UNKNOWN
     Route: 065
     Dates: start: 2014
  4. TESTIM [Suspect]
     Active Substance: TESTOSTERONE
     Indication: BLOOD TESTOSTERONE DECREASED
  5. TESTIM [Suspect]
     Active Substance: TESTOSTERONE
     Indication: ASTHENIA
  6. TESTOPEL [Suspect]
     Active Substance: TESTOSTERONE
     Indication: ASTHENIA
  7. LIPITOR [Concomitant]
     Active Substance: ATORVASTATIN CALCIUM
     Indication: BLOOD CHOLESTEROL
     Dosage: UNK UNKNOWN, UNKNOWN
     Route: 065
     Dates: start: 2013
  8. NIACIN. [Concomitant]
     Active Substance: NIACIN
     Indication: BLOOD CHOLESTEROL
     Dosage: UNK UNKNOWN, UNKNOWN
     Route: 065
     Dates: start: 2014
  9. TESTOPEL [Suspect]
     Active Substance: TESTOSTERONE
     Indication: ANDROGEN REPLACEMENT THERAPY
     Dosage: UNK UNKNOWN, EVERY 4 MONTHS
     Route: 065
     Dates: start: 201302, end: 201408

REACTIONS (5)
  - Transient ischaemic attack [Not Recovered/Not Resolved]
  - Anhedonia [Unknown]
  - Contusion [Unknown]
  - Emotional distress [Unknown]
  - Pain [Unknown]

NARRATIVE: CASE EVENT DATE: 20140828
